FAERS Safety Report 15942817 (Version 1)
Quarter: 2019Q1

REPORT INFORMATION
  Report Type: Spontaneous
  Country: PL (occurrence: PL)
  Receive Date: 20190210
  Receipt Date: 20190210
  Transmission Date: 20190417
  Serious: Yes (Death)
  Sender: FDA-Public Use
  Company Number: PHHY2019PL028169

PATIENT
  Age: 80 Year
  Sex: Male

DRUGS (1)
  1. METHOTREXATE. [Suspect]
     Active Substance: METHOTREXATE
     Indication: RHEUMATOID ARTHRITIS
     Dosage: 10 MG, Q12H
     Route: 048
     Dates: start: 20181221, end: 20181228

REACTIONS (16)
  - Multiple organ dysfunction syndrome [Fatal]
  - Rash maculo-papular [Fatal]
  - Electrolyte imbalance [Fatal]
  - Haemorrhage [Fatal]
  - Stomatitis [Fatal]
  - Dyspnoea [Fatal]
  - Dermatitis [Fatal]
  - Purulent discharge [Fatal]
  - Toxicity to various agents [Fatal]
  - General physical condition decreased [Fatal]
  - Accidental overdose [Fatal]
  - Bone marrow failure [Fatal]
  - Pharyngeal inflammation [Fatal]
  - Pneumonia [Fatal]
  - Agranulocytosis [Fatal]
  - Skin fissures [Fatal]
